FAERS Safety Report 5634882-2 (Version None)
Quarter: 2008Q1

REPORT INFORMATION
  Report Type: 
  Country: None (occurrence: None)
  Receive Date: 20080222
  Receipt Date: 20080218
  Transmission Date: 20080703
  Serious: Yes (Life-Threatening, Hospitalization)
  Sender: FDA-Public Use
  Company Number: DE-ASTRAZENECA-2008PK00346

PATIENT
  Age: 13325 Day
  Sex: Female

DRUGS (55)
  1. DISOPRIVAN [Suspect]
     Indication: SEDATION
     Route: 042
  2. BELOC ZOK [Suspect]
     Indication: HYPERTENSION
     Route: 048
  3. HAES [Suspect]
     Indication: FLUID REPLACEMENT
     Route: 042
  4. HAES [Suspect]
     Route: 042
  5. FENTANYL [Suspect]
     Indication: SEDATION
     Route: 042
  6. MANNITOL [Suspect]
     Indication: BRAIN OEDEMA
     Route: 042
  7. MANNITOL [Suspect]
     Route: 042
  8. ACETYLCYSTEINE [Suspect]
     Indication: MECHANICAL VENTILATION
  9. ACETYLCYSTEINE [Suspect]
  10. AMBROXOL [Suspect]
     Indication: MECHANICAL VENTILATION
     Route: 042
  11. DORMICUM [Suspect]
     Indication: SEDATION
     Route: 042
  12. PANTOZOL [Suspect]
     Indication: PROPHYLAXIS
     Route: 042
  13. EMBOLEX [Suspect]
     Indication: THROMBOSIS PROPHYLAXIS
     Route: 058
  14. TOREM [Suspect]
     Indication: OEDEMA
     Route: 042
  15. TOREM [Suspect]
     Route: 042
  16. TOREM [Suspect]
     Route: 042
  17. TOREM [Suspect]
     Route: 042
  18. TOREM [Suspect]
     Route: 042
  19. NORADRENALIN [Suspect]
     Indication: HYPOVOLAEMIA
     Route: 042
  20. NOVAMINSULFON [Suspect]
     Indication: PAIN
     Route: 042
  21. NOVAMINSULFON [Suspect]
     Route: 042
  22. NOVAMINSULFON [Suspect]
     Route: 042
  23. TAZOBACTAM [Suspect]
     Indication: INFECTION
     Route: 042
  24. LAXOBERAL [Suspect]
     Indication: CONSTIPATION
     Route: 048
  25. MOVICOL [Suspect]
     Indication: CONSTIPATION
     Route: 048
  26. MOVICOL [Suspect]
     Route: 048
  27. GENTAMICIN [Suspect]
     Indication: INFECTION
     Route: 042
  28. FENISTIL [Suspect]
     Indication: RASH
     Route: 042
  29. FENISTIL [Suspect]
     Route: 042
  30. HYDROCORTISONE [Suspect]
     Indication: RASH
     Route: 042
  31. HYDROCORTISONE [Suspect]
     Route: 042
  32. CLONIDINE [Suspect]
     Indication: HYPERTENSION
     Route: 042
  33. LIPOVENOES [Suspect]
     Indication: PARENTERAL NUTRITION
     Route: 042
  34. PERFALGAN [Suspect]
     Indication: PAIN
     Route: 042
  35. PERFALGAN [Suspect]
     Route: 042
  36. PARACEFAN [Suspect]
     Indication: HYPERTENSION
     Route: 042
  37. TRAPANAL [Concomitant]
     Indication: ANAESTHESIA
  38. JONOSTERIL [Concomitant]
     Indication: FLUID REPLACEMENT
  39. DOLANTIN [Concomitant]
     Indication: PAIN MANAGEMENT
  40. VOLUVEN [Concomitant]
     Indication: FLUID REPLACEMENT
  41. GLUCOSE [Concomitant]
     Indication: PARENTERAL NUTRITION
     Route: 042
  42. PREDNISOLONE [Concomitant]
     Indication: RASH
     Route: 042
  43. PREDNISOLONE [Concomitant]
     Route: 042
  44. PREDNISOLONE [Concomitant]
     Route: 042
  45. INTRAFUSIN [Concomitant]
     Indication: FLUID REPLACEMENT
     Route: 042
  46. SODIUM CHLORIDE [Concomitant]
     Indication: FLUID REPLACEMENT
     Route: 042
  47. TRACUTIL [Concomitant]
     Indication: MINERAL SUPPLEMENTATION
     Route: 042
  48. ESPUMISAN [Concomitant]
     Indication: FLATULENCE
     Route: 048
  49. ZIENAM [Concomitant]
     Indication: BRONCHITIS
     Route: 042
  50. METOPROLOL SUCCINATE [Concomitant]
     Indication: HYPERTENSION
     Route: 048
  51. RANITIDINE HCL [Concomitant]
     Indication: RASH
     Route: 042
  52. SUFENTANIL CITRATE [Concomitant]
     Indication: ANAESTHESIA
     Route: 042
  53. URBASON [Concomitant]
     Indication: RASH
     Route: 042
  54. URBASON [Concomitant]
     Route: 042
  55. PROPOFOL [Concomitant]
     Indication: ANAESTHESIA
     Route: 042

REACTIONS (1)
  - TOXIC EPIDERMAL NECROLYSIS [None]
